FAERS Safety Report 8239052-X (Version None)
Quarter: 2012Q1

REPORT INFORMATION
  Report Type: 
  Country: None (occurrence: None)
  Receive Date: 20120327
  Receipt Date: 20120320
  Transmission Date: 20120608
  Serious: Yes (Other)
  Sender: FDA-Public Use
  Company Number: FR-MERCK-1203FRA00061

PATIENT
  Age: 39 Year
  Sex: Male

DRUGS (3)
  1. RITONAVIR [Concomitant]
     Indication: HIV INFECTION
     Route: 065
     Dates: start: 20070827, end: 20080321
  2. ISENTRESS [Suspect]
     Indication: HIV INFECTION
     Route: 048
     Dates: start: 20080221, end: 20080321
  3. DARUNAVIR [Concomitant]
     Indication: HIV INFECTION
     Route: 065
     Dates: start: 20070827, end: 20080321

REACTIONS (3)
  - PYREXIA [None]
  - CYTOLYTIC HEPATITIS [None]
  - RASH PRURITIC [None]
